FAERS Safety Report 15320368 (Version 1)
Quarter: 2018Q3

REPORT INFORMATION
  Report Type: Spontaneous
  Country: IT (occurrence: IT)
  Receive Date: 20180827
  Receipt Date: 20180827
  Transmission Date: 20181010
  Serious: Yes (Other)
  Sender: FDA-Public Use
  Company Number: IT-BAYER-2018-102122

PATIENT
  Age: 30 Year
  Sex: Female

DRUGS (1)
  1. JAYDESS [Suspect]
     Active Substance: LEVONORGESTREL
     Indication: CONTRACEPTION
     Dosage: 14 MCG/24HR, CONT
     Route: 015
     Dates: start: 201607

REACTIONS (4)
  - Ectopic pregnancy with contraceptive device [None]
  - Peritoneal haemorrhage [None]
  - Drug ineffective [None]
  - Haemorrhage in pregnancy [None]

NARRATIVE: CASE EVENT DATE: 201805
